FAERS Safety Report 22619826 (Version 1)
Quarter: 2023Q2

REPORT INFORMATION
  Report Type: Spontaneous
  Country: US (occurrence: None)
  Receive Date: 20230616
  Receipt Date: 20230616
  Transmission Date: 20230721
  Serious: Yes (Hospitalization, Other)
  Sender: FDA-Public Use
  Company Number: None

PATIENT
  Age: 70 Year
  Sex: Male
  Weight: 65.25 kg

DRUGS (1)
  1. FLUOROURACIL [Suspect]
     Active Substance: FLUOROURACIL
     Indication: Actinic keratosis
     Dosage: FREQUENCY : TWICE A DAY;?
     Route: 061

REACTIONS (4)
  - Tachycardia [None]
  - Dyspnoea [None]
  - Chest discomfort [None]
  - Ischaemia [None]

NARRATIVE: CASE EVENT DATE: 20230602
